FAERS Safety Report 8406363 (Version 2)
Quarter: 2012Q4

REPORT INFORMATION
  Report Type: 
  Country: US (occurrence: US)
  Receive Date: 20120215
  Receipt Date: 20121018
  Transmission Date: 20130627
  Serious: No
  Sender: FDA-Public Use
  Company Number: US-B.I. PHARMACEUTICALS,INC./RIDGEFIELD-2012-BP-02214BP

PATIENT
  Age: 73 Year
  Sex: Female

DRUGS (14)
  1. SPIRIVA HANDIHALER [Suspect]
     Indication: CHRONIC OBSTRUCTIVE PULMONARY DISEASE
     Dosage: 18 mcg
     Route: 055
     Dates: start: 201111
  2. DULERA [Concomitant]
     Indication: ASTHMA
     Dosage: 400 mg
     Route: 055
     Dates: start: 201103
  3. SYNTHROID [Concomitant]
     Indication: HYPOTHYROIDISM
     Route: 048
     Dates: start: 2009
  4. LEXAPRO [Concomitant]
     Indication: DEPRESSION
     Route: 048
     Dates: start: 2008
  5. MULTIVITAMINS [Concomitant]
     Indication: PROPHYLAXIS
     Route: 048
     Dates: start: 1983
  6. VITAMIN C [Concomitant]
     Indication: PROPHYLAXIS
     Route: 048
     Dates: start: 1983
  7. OSTEOMATRIX [Concomitant]
     Indication: PROPHYLAXIS
     Route: 048
     Dates: start: 1983
  8. VITAMIN D [Concomitant]
     Indication: PROPHYLAXIS
     Route: 048
     Dates: start: 1983
  9. COQ10 [Concomitant]
     Indication: PROPHYLAXIS
     Route: 048
     Dates: start: 1983
  10. NUTRIFERON [Concomitant]
     Indication: PROPHYLAXIS
     Route: 048
     Dates: start: 1983
  11. CRANBERRY EXTRACT [Concomitant]
     Indication: PROPHYLAXIS
     Route: 048
     Dates: start: 1983
  12. VITAMIN B [Concomitant]
     Indication: PROPHYLAXIS
     Route: 048
     Dates: start: 1983
  13. VENTOLIN [Concomitant]
     Indication: ASTHMA
     Route: 055
     Dates: start: 201103
  14. OXYGEN [Concomitant]
     Indication: ASTHMA
     Route: 055
     Dates: start: 201103

REACTIONS (4)
  - Drug ineffective [Not Recovered/Not Resolved]
  - Dyspnoea [Unknown]
  - Product quality issue [Unknown]
  - Product quality issue [Unknown]
